FAERS Safety Report 18372157 (Version 2)
Quarter: 2020Q4

REPORT INFORMATION
  Report Type: Spontaneous
  Country: US (occurrence: US)
  Receive Date: 20201012
  Receipt Date: 20201123
  Transmission Date: 20210114
  Serious: No
  Sender: FDA-Public Use
  Company Number: US-JNJFOC-20201012020

PATIENT
  Age: 70 Year
  Sex: Female
  Weight: 91 kg

DRUGS (1)
  1. DURAGESIC [Suspect]
     Active Substance: FENTANYL
     Indication: PRODUCT USED FOR UNKNOWN INDICATION
     Route: 062

REACTIONS (4)
  - Pain [Unknown]
  - Therapeutic response decreased [Unknown]
  - Weight decreased [Unknown]
  - Adverse event [Unknown]
